FAERS Safety Report 9288143 (Version 1)
Quarter: 2013Q2

REPORT INFORMATION
  Report Type: Spontaneous
  Country: JP (occurrence: None)
  Receive Date: 20130510
  Receipt Date: 20130510
  Transmission Date: 20140414
  Serious: Yes (Death, Hospitalization)
  Sender: FDA-Public Use
  Company Number: TCI2013A02462

PATIENT
  Age: 85 Year
  Sex: Male

DRUGS (8)
  1. ROZEREM TABLETS 8MG (RAMELTEON) [Suspect]
     Indication: INSOMNIA
     Dosage: 230 DAYS
     Route: 048
     Dates: start: 20120515, end: 20121231
  2. TAKEPRON OD TABLETS 15 (LANSOPRAZOLE) [Concomitant]
  3. PURSENNID (SENNOSIDE A+B CALCIUM) [Concomitant]
  4. MAGMITT (MAGNESIUM OXIDE) [Concomitant]
  5. DECADRON (DEXAMETHASONE) [Concomitant]
  6. EVIPROSTAT [Concomitant]
  7. LOXONIN (LOXOPROFEN SODIUM) [Concomitant]
  8. LYRICA (PREGABALIN) [Concomitant]

REACTIONS (4)
  - Lung neoplasm malignant [None]
  - Condition aggravated [None]
  - Insomnia [None]
  - Initial insomnia [None]
